FAERS Safety Report 17633324 (Version 2)
Quarter: 2020Q4

REPORT INFORMATION
  Report Type: Report from Study
  Country: GB (occurrence: GB)
  Receive Date: 20200407
  Receipt Date: 20201204
  Transmission Date: 20210113
  Serious: Yes (Other)
  Sender: FDA-Public Use
  Company Number: GB-SUN PHARMACEUTICAL INDUSTRIES LTD-2020RR-242720

PATIENT
  Age: 22 Year
  Sex: Male

DRUGS (7)
  1. MIDAZOLAM. [Suspect]
     Active Substance: MIDAZOLAM
     Indication: STATUS EPILEPTICUS
     Dosage: UNK
     Route: 065
  2. LEVETIRACETAM. [Suspect]
     Active Substance: LEVETIRACETAM
     Indication: STATUS EPILEPTICUS
     Dosage: UNK
     Route: 065
  3. PROPOFOL. [Suspect]
     Active Substance: PROPOFOL
     Indication: STATUS EPILEPTICUS
     Dosage: UNK
     Route: 040
  4. PHENOBARBITAL. [Suspect]
     Active Substance: PHENOBARBITAL
     Indication: STATUS EPILEPTICUS
     Dosage: UNK
     Route: 065
  5. PHENYTOIN. [Suspect]
     Active Substance: PHENYTOIN
     Indication: STATUS EPILEPTICUS
     Dosage: UNK
     Route: 065
  6. VALPROIC ACID. [Suspect]
     Active Substance: VALPROIC ACID
     Indication: STATUS EPILEPTICUS
     Dosage: UNK
     Route: 065
  7. FENTANYL. [Suspect]
     Active Substance: FENTANYL
     Indication: STATUS EPILEPTICUS
     Dosage: UNK
     Route: 040

REACTIONS (2)
  - Disease recurrence [Unknown]
  - Drug ineffective [Unknown]
